FAERS Safety Report 11675065 (Version 1)
Quarter: 2015Q4

REPORT INFORMATION
  Report Type: Spontaneous
  Country: US (occurrence: US)
  Receive Date: 20151027
  Receipt Date: 20151027
  Transmission Date: 20160304
  Serious: No
  Sender: FDA-Public Use
  Company Number: US-ELI_LILLY_AND_COMPANY-US201008006999

PATIENT
  Sex: Male

DRUGS (1)
  1. FORTEO [Suspect]
     Active Substance: TERIPARATIDE
     Dosage: 20 UG, DAILY (1/D)
     Dates: start: 20100607, end: 20100816

REACTIONS (5)
  - Pain [Unknown]
  - Bone density decreased [Unknown]
  - Gait disturbance [Unknown]
  - Influenza like illness [Unknown]
  - Abdominal pain upper [Unknown]
